FAERS Safety Report 5727151-3 (Version None)
Quarter: 2008Q2

REPORT INFORMATION
  Report Type: 
  Country: None (occurrence: None)
  Receive Date: 20080505
  Receipt Date: 20080425
  Transmission Date: 20081010
  Serious: Yes (Other)
  Sender: FDA-Public Use
  Company Number: US-JNJFOC-20080407022

PATIENT
  Sex: Female
  Weight: 72.58 kg

DRUGS (7)
  1. REMICADE [Suspect]
     Route: 042
  2. REMICADE [Suspect]
     Indication: CROHN'S DISEASE
     Route: 042
  3. PENTASA [Concomitant]
     Indication: CROHN'S DISEASE
  4. PROTONIX [Concomitant]
     Indication: CROHN'S DISEASE
     Dosage: 1 TABLET DAILY
  5. PREDNISONE [Concomitant]
     Indication: CROHN'S DISEASE
     Dosage: AS NEEDED
  6. MOLONODIL [Concomitant]
     Indication: CROHN'S DISEASE
     Dosage: AS NEEDED
  7. HUMIRA [Concomitant]
     Indication: CROHN'S DISEASE
     Dosage: AS NEEDED

REACTIONS (3)
  - EAR HAEMORRHAGE [None]
  - HERPES ZOSTER [None]
  - SKIN INFECTION [None]
